FAERS Safety Report 9418602 (Version 5)
Quarter: 2014Q2

REPORT INFORMATION
  Report Type: Report from Study
  Country: CA (occurrence: CA)
  Receive Date: 20130725
  Receipt Date: 20140508
  Transmission Date: 20141212
  Serious: Yes (Death, Hospitalization, Other)
  Sender: FDA-Public Use
  Company Number: CA-ROCHE-1186502

PATIENT
  Age: 67 Year
  Sex: Male
  Weight: 104 kg

DRUGS (7)
  1. ACTEMRA [Suspect]
     Indication: RHEUMATOID ARTHRITIS
     Route: 042
     Dates: start: 20130109
  2. ACTEMRA [Suspect]
     Route: 042
     Dates: start: 20131114, end: 20140213
  3. ACTONEL [Concomitant]
  4. ARTHROTEC [Concomitant]
  5. PREDNISONE [Concomitant]
  6. METHOTREXATE [Concomitant]
  7. AVALIDE [Concomitant]

REACTIONS (12)
  - Death [Fatal]
  - Joint swelling [Unknown]
  - Localised infection [Not Recovered/Not Resolved]
  - Abdominal discomfort [Not Recovered/Not Resolved]
  - Diarrhoea [Not Recovered/Not Resolved]
  - Rash [Recovering/Resolving]
  - Blood pressure increased [Unknown]
  - Heart rate increased [Unknown]
  - Skin ulcer [Recovering/Resolving]
  - Nasopharyngitis [Recovering/Resolving]
  - Blood pressure diastolic increased [Unknown]
  - Haemorrhage [Recovered/Resolved]
